FAERS Safety Report 12938542 (Version 1)
Quarter: 2016Q4

REPORT INFORMATION
  Report Type: Spontaneous
  Country: RO (occurrence: RO)
  Receive Date: 20161115
  Receipt Date: 20161115
  Transmission Date: 20170207
  Serious: Yes (Other)
  Sender: FDA-Public Use
  Company Number: RO-ROCHE-1853785

PATIENT
  Age: 56 Year
  Sex: Female

DRUGS (5)
  1. RITUXIMAB [Suspect]
     Active Substance: RITUXIMAB
     Indication: NON-HODGKIN^S LYMPHOMA
     Route: 065
     Dates: start: 2013, end: 201609
  2. BLOOD TRANSFUSION [Concomitant]
     Active Substance: WHOLE BLOOD
  3. PREDNISONE. [Concomitant]
     Active Substance: PREDNISONE
     Indication: NON-HODGKIN^S LYMPHOMA
     Route: 065
     Dates: start: 2013, end: 201411
  4. CYCLOPHOSPHAMIDE. [Concomitant]
     Active Substance: CYCLOPHOSPHAMIDE
     Indication: NON-HODGKIN^S LYMPHOMA
     Route: 065
     Dates: start: 2013, end: 201411
  5. VINCRISTINE [Concomitant]
     Active Substance: VINCRISTINE
     Indication: NON-HODGKIN^S LYMPHOMA
     Route: 065
     Dates: start: 2013, end: 201411

REACTIONS (7)
  - Osteoporosis [Unknown]
  - Herpes zoster [Unknown]
  - Pneumonia [Unknown]
  - Lung abscess [Unknown]
  - Myopathy [Unknown]
  - Tooth abscess [Unknown]
  - Subcutaneous abscess [Unknown]
